APPROVED DRUG PRODUCT: AZLIN
Active Ingredient: AZLOCILLIN SODIUM
Strength: EQ 2GM BASE/VIAL
Dosage Form/Route: INJECTABLE;INJECTION
Application: A062417 | Product #001
Applicant: BAYER PHARMACEUTICALS CORP
Approved: Oct 12, 1982 | RLD: No | RS: No | Type: DISCN